FAERS Safety Report 12553030 (Version 5)
Quarter: 2016Q4

REPORT INFORMATION
  Report Type: Report from Study
  Country: US (occurrence: US)
  Receive Date: 20160713
  Receipt Date: 20161109
  Transmission Date: 20170207
  Serious: Yes (Hospitalization)
  Sender: FDA-Public Use
  Company Number: PHEH2016US016700

PATIENT
  Age: 33 Year
  Sex: Male
  Weight: 73.16 kg

DRUGS (5)
  1. FISH OIL [Concomitant]
     Active Substance: FISH OIL
     Indication: PRODUCT USED FOR UNKNOWN INDICATION
     Dosage: UNK, QD
     Route: 065
  2. CLARITIN [Concomitant]
     Active Substance: LORATADINE
     Indication: PRODUCT USED FOR UNKNOWN INDICATION
     Dosage: 10 MG, QD
     Route: 048
  3. GILENYA [Suspect]
     Active Substance: FINGOLIMOD HYDROCHLORIDE
     Indication: MULTIPLE SCLEROSIS
     Dosage: 0.5 MG, QD
     Route: 048
     Dates: start: 20140429
  4. FLUOXETINE HYDROCHLORIDE. [Concomitant]
     Active Substance: FLUOXETINE HYDROCHLORIDE
     Indication: PRODUCT USED FOR UNKNOWN INDICATION
     Dosage: 10 MG, QD
     Route: 048
     Dates: start: 20141125
  5. GILENYA [Suspect]
     Active Substance: FINGOLIMOD HYDROCHLORIDE
     Dosage: 0.5 MG, QOD
     Route: 048
     Dates: start: 20141204, end: 20141212

REACTIONS (17)
  - Reflexes abnormal [Unknown]
  - Multiple sclerosis relapse [Unknown]
  - Coordination abnormal [Unknown]
  - Disturbance in attention [Unknown]
  - Vision blurred [Not Recovered/Not Resolved]
  - Malaise [Unknown]
  - Immunodeficiency [Unknown]
  - Visual impairment [Unknown]
  - Fatigue [Unknown]
  - Depression [Unknown]
  - Sinusitis [Unknown]
  - Leukopenia [Unknown]
  - Prescribed underdose [Unknown]
  - Pollakiuria [Not Recovered/Not Resolved]
  - Memory impairment [Unknown]
  - Sinus congestion [Unknown]
  - Lymphocyte count decreased [Recovered/Resolved]

NARRATIVE: CASE EVENT DATE: 20141204
